FAERS Safety Report 16088437 (Version 1)
Quarter: 2019Q1

REPORT INFORMATION
  Report Type: Spontaneous
  Country: FR (occurrence: FR)
  Receive Date: 20190319
  Receipt Date: 20190319
  Transmission Date: 20190418
  Serious: Yes (Hospitalization, Other)
  Sender: FDA-Public Use
  Company Number: FR-AUROBINDO-AUR-APL-2019-015250

PATIENT

DRUGS (7)
  1. ALPRAZOLAM. [Suspect]
     Active Substance: ALPRAZOLAM
     Indication: PARANOID PERSONALITY DISORDER
     Dosage: 1.5 MILLIGRAM, ONCE A DAY
     Route: 048
     Dates: end: 20190208
  2. TROPATEPINE [Suspect]
     Active Substance: TROPATEPINE
     Indication: PRODUCT USED FOR UNKNOWN INDICATION
     Dosage: 20 MILLIGRAM, ONCE A DAY
     Route: 048
     Dates: start: 20190208, end: 20190211
  3. AMANTADINE HYDROCHLORIDE. [Concomitant]
     Active Substance: AMANTADINE HYDROCHLORIDE
     Indication: PRODUCT USED FOR UNKNOWN INDICATION
     Dosage: UNK
     Route: 065
  4. CLOZAPINE. [Suspect]
     Active Substance: CLOZAPINE
     Indication: PARANOID PERSONALITY DISORDER
     Dosage: 400 MILLIGRAM, ONCE A DAY
     Route: 048
     Dates: start: 20190208, end: 20190211
  5. NITRAZEPAM [Concomitant]
     Active Substance: NITRAZEPAM
     Indication: PRODUCT USED FOR UNKNOWN INDICATION
     Dosage: UNK
     Route: 065
  6. LOXAPINE SUCCINATE. [Suspect]
     Active Substance: LOXAPINE SUCCINATE
     Indication: PARANOID PERSONALITY DISORDER
     Dosage: 300 MILLIGRAM, ONCE A DAY
     Route: 048
     Dates: start: 20190208, end: 20190211
  7. LORMETAZEPAM [Suspect]
     Active Substance: LORMETAZEPAM
     Indication: PARANOID PERSONALITY DISORDER
     Dosage: 2 MILLIGRAM, ONCE A DAY
     Route: 048
     Dates: end: 20190208

REACTIONS (2)
  - Seizure [Recovered/Resolved]
  - Drug withdrawal convulsions [Recovered/Resolved]

NARRATIVE: CASE EVENT DATE: 20190211
